FAERS Safety Report 5485675-0 (Version None)
Quarter: 2007Q4

REPORT INFORMATION
  Report Type: 
  Country: None (occurrence: None)
  Receive Date: 20071011
  Receipt Date: 20071011
  Transmission Date: 20080405
  Serious: Yes (Other)
  Sender: FDA-Public Use
  Company Number: None

PATIENT
  Age: 66 Year
  Sex: Female
  Weight: 63.5036 kg

DRUGS (1)
  1. CHANTIX [Suspect]
     Indication: NICOTINE DEPENDENCE
     Dosage: 1 MG BID PO
     Route: 048
     Dates: start: 20070904, end: 20071010

REACTIONS (9)
  - ANGER [None]
  - CONSTIPATION [None]
  - FLATULENCE [None]
  - INSOMNIA [None]
  - MIDDLE INSOMNIA [None]
  - NAUSEA [None]
  - POLYURIA [None]
  - PRURITUS [None]
  - WEIGHT DECREASED [None]
